FAERS Safety Report 4800864-3 (Version None)
Quarter: 2005Q4

REPORT INFORMATION
  Report Type: 
  Country: None (occurrence: None)
  Receive Date: 20051013
  Receipt Date: 20051013
  Transmission Date: 20060501
  Serious: Yes (Other)
  Sender: FDA-Public Use
  Company Number: None

PATIENT
  Age: 52 Year
  Sex: Female

DRUGS (5)
  1. MERCAPTOPURINE [Suspect]
     Dosage: SEE IMAGE
     Dates: start: 20040922, end: 20040214
  2. XANAX [Concomitant]
  3. PRILOSEC [Concomitant]
  4. OXYCODONE [Concomitant]
  5. WELLBUTRIN [Concomitant]

REACTIONS (6)
  - ALANINE AMINOTRANSFERASE INCREASED [None]
  - ASPARTATE AMINOTRANSFERASE INCREASED [None]
  - HEPATIC TRAUMA [None]
  - JAUNDICE [None]
  - PYREXIA [None]
  - RASH [None]
